FAERS Safety Report 5426557-X (Version None)
Quarter: 2007Q3

REPORT INFORMATION
  Report Type: 
  Country: None (occurrence: None)
  Receive Date: 20070731
  Receipt Date: 20070420
  Transmission Date: 20080115
  Serious: No
  Sender: FDA-Public Use
  Company Number: US200704004799

PATIENT
  Age: 50 Year
  Sex: Male
  Weight: 115.6 kg

DRUGS (3)
  1. BYETTA [Suspect]
     Indication: TYPE 2 DIABETES MELLITUS
     Dosage: 5 UG, 2/D, SUBCUTANEOUS
     Route: 058
     Dates: start: 20070201
  2. EXENATIDE PEN             (EXENATIDE PEN) [Concomitant]
  3. INSULIN (INSULIN) [Concomitant]

REACTIONS (4)
  - COUGH [None]
  - DECREASED APPETITE [None]
  - LARYNGITIS [None]
  - WEIGHT DECREASED [None]
